FAERS Safety Report 21918638 (Version 1)
Quarter: 2023Q1

REPORT INFORMATION
  Report Type: Spontaneous
  Country: NL (occurrence: NL)
  Receive Date: 20230127
  Receipt Date: 20230127
  Transmission Date: 20230418
  Serious: Yes (Death, Other)
  Sender: FDA-Public Use
  Company Number: NL-LRB-00862727

PATIENT
  Sex: Male
  Weight: 56 kg

DRUGS (1)
  1. DICLOFENAC [Suspect]
     Active Substance: DICLOFENAC
     Indication: Pain
     Dosage: 100 MILLIGRAM, ONCE A DAY (1X PER DAY 1 PIECE)
     Route: 065
     Dates: start: 20221206, end: 20221210

REACTIONS (3)
  - Asthenia [Fatal]
  - Gastrointestinal haemorrhage [Fatal]
  - Somnolence [Fatal]
